FAERS Safety Report 21822534 (Version 2)
Quarter: 2023Q4

REPORT INFORMATION
  Report Type: Spontaneous
  Country: TR (occurrence: TR)
  Receive Date: 20230105
  Receipt Date: 20231010
  Transmission Date: 20240110
  Serious: Yes (Other)
  Sender: FDA-Public Use
  Company Number: TR-MYLANLABS-2022M1141265

PATIENT
  Age: 29 Year
  Sex: Male

DRUGS (3)
  1. CLOZAPINE [Suspect]
     Active Substance: CLOZAPINE
     Indication: Schizophrenia
     Dosage: 350 MILLIGRAM, QD (INCREASING GRADUALLY)
     Route: 065
  2. ARIPIPRAZOLE [Suspect]
     Active Substance: ARIPIPRAZOLE
     Indication: Schizophrenia
     Dosage: 30 MILLIGRAM, QD (INCREASING GRADUALLY)
     Route: 065
  3. ARIPIPRAZOLE [Suspect]
     Active Substance: ARIPIPRAZOLE
     Dosage: 5 MILLIGRAM, QD (DECREASED TO 5MG/D)
     Route: 065

REACTIONS (2)
  - Ejaculation disorder [Unknown]
  - Oligospermia [Recovered/Resolved]
